FAERS Safety Report 11930634 (Version 1)
Quarter: 2016Q1

REPORT INFORMATION
  Report Type: Spontaneous
  Country: US (occurrence: None)
  Receive Date: 20160119
  Receipt Date: 20160119
  Transmission Date: 20160526
  Serious: No
  Sender: FDA-Public Use
  Company Number: None

PATIENT
  Age: 35 Year
  Sex: Female
  Weight: 111.13 kg

DRUGS (1)
  1. WELLBUTRIN XL [Suspect]
     Active Substance: BUPROPION HYDROCHLORIDE
     Dosage: 1X PILL A DAY ONCE DAILY TAKEN BY MOUTH

REACTIONS (18)
  - Depression [None]
  - Metrorrhagia [None]
  - Crying [None]
  - Tremor [None]
  - Hypertension [None]
  - Drug withdrawal syndrome [None]
  - Palpitations [None]
  - Lethargy [None]
  - Hostility [None]
  - Irritability [None]
  - Dyspnoea [None]
  - Sensory disturbance [None]
  - Dizziness [None]
  - Alopecia [None]
  - Drug ineffective [None]
  - Menstruation irregular [None]
  - Hypoaesthesia [None]
  - Gait disturbance [None]

NARRATIVE: CASE EVENT DATE: 20151230
